FAERS Safety Report 5007778-7 (Version None)
Quarter: 2006Q2

REPORT INFORMATION
  Report Type: 
  Country: None (occurrence: None)
  Receive Date: 20060522
  Receipt Date: 20051001
  Transmission Date: 20061013
  Serious: Yes (Hospitalization)
  Sender: FDA-Public Use
  Company Number: FR-GLAXOSMITHKLINE-B0396408A

PATIENT
  Age: 44 Year
  Sex: Male

DRUGS (4)
  1. REQUIP [Suspect]
     Indication: PARKINSON'S DISEASE
     Route: 048
     Dates: start: 20030321, end: 20051001
  2. PAROXETINE HYDROCHLORIDE [Suspect]
     Dosage: 280MG PER DAY
     Route: 048
     Dates: start: 20050120, end: 20050120
  3. PIRIBEDIL [Concomitant]
     Indication: PARKINSON'S DISEASE
     Dosage: 50MG THREE TIMES PER DAY
     Route: 048
     Dates: start: 20050925, end: 20051031
  4. MODOPAR [Concomitant]
     Indication: PARKINSON'S DISEASE
     Route: 048
     Dates: start: 20051031

REACTIONS (14)
  - ABNORMAL BEHAVIOUR [None]
  - DEPRESSION [None]
  - EATING DISORDER [None]
  - EXCESSIVE MASTURBATION [None]
  - EXCESSIVE SEXUAL FANTASIES [None]
  - HOMOSEXUALITY [None]
  - LIBIDO INCREASED [None]
  - MANIA [None]
  - NAUSEA [None]
  - PATHOLOGICAL GAMBLING [None]
  - PERSONALITY DISORDER [None]
  - SOMNOLENCE [None]
  - SUICIDE ATTEMPT [None]
  - THEFT [None]
